FAERS Safety Report 18935754 (Version 3)
Quarter: 2022Q3

REPORT INFORMATION
  Report Type: Spontaneous
  Country: FR (occurrence: FR)
  Receive Date: 20210225
  Receipt Date: 20220915
  Transmission Date: 20221026
  Serious: Yes (Hospitalization, Other)
  Sender: FDA-Public Use
  Company Number: FR-AFSSAPS-LL20210432

PATIENT
  Age: 1 Day
  Sex: Female

DRUGS (13)
  1. CEFTAZIDIME [Suspect]
     Active Substance: CEFTAZIDIME
     Indication: Infection
     Dosage: 5 GRAM, TWO TIMES A DAY(5 G/12 H )
     Route: 064
     Dates: start: 20200119, end: 20210127
  2. OMEPRAZOLE [Suspect]
     Active Substance: OMEPRAZOLE
     Indication: Prophylaxis
     Dosage: 80 MILLIGRAM(40 MG/12 H )
     Route: 064
     Dates: end: 20210202
  3. AZTREONAM [Suspect]
     Active Substance: AZTREONAM
     Indication: Product used for unknown indication
     Dosage: UNK(6G/D )
     Route: 065
  4. AZACTAM [Suspect]
     Active Substance: AZTREONAM
     Indication: Prophylaxis
     Dosage: 1 GRAM
     Route: 064
  5. AZACTAM [Suspect]
     Active Substance: AZTREONAM
     Dosage: 6 GRAM
     Route: 064
     Dates: start: 20210127, end: 20210202
  6. BRICANYL [Suspect]
     Active Substance: TERBUTALINE SULFATE
     Indication: Product used for unknown indication
     Dosage: UNK
     Route: 064
  7. CREON [Suspect]
     Active Substance: PANCRELIPASE AMYLASE\PANCRELIPASE LIPASE\PANCRELIPASE PROTEASE
     Indication: Pancreatic failure
     Dosage: UNK (11 TO 16 GEL PER DAY)
     Route: 064
     Dates: end: 20210202
  8. ELEXACAFTOR\IVACAFTOR\TEZACAFTOR [Suspect]
     Active Substance: ELEXACAFTOR\IVACAFTOR\TEZACAFTOR
     Indication: Cystic fibrosis
     Dosage: UNK
     Route: 064
     Dates: end: 20210202
  9. CALCIUM PHOSPHATE, DIBASIC, ANHYDROUS\MAGNESIUM GLYCEROPHOSPHATE\PHOSP [Suspect]
     Active Substance: CALCIUM PHOSPHATE, DIBASIC, ANHYDROUS\MAGNESIUM GLYCEROPHOSPHATE\PHOSPHORIC ACID\SODIUM PHOSPHATE, D
     Indication: Product used for unknown indication
     Dosage: UNK(200 DROPS )
     Route: 064
  10. CEFTAZIDIME [Suspect]
     Active Substance: CEFTAZIDIME
     Indication: Product used for unknown indication
     Dosage: UNK
     Route: 064
     Dates: start: 20201007
  11. .ALPHA.-TOCOPHEROL ACETATE, D- [Suspect]
     Active Substance: .ALPHA.-TOCOPHEROL ACETATE, D-
     Indication: Product used for unknown indication
     Dosage: UNK
     Route: 064
  12. PANCREATIN [Concomitant]
     Active Substance: PANCRELIPASE
     Indication: Product used for unknown indication
     Dosage: UNK(160, 000 UI/D )
     Route: 065
  13. UNSPECIFIED INGREDIENT [Concomitant]
     Active Substance: UNSPECIFIED INGREDIENT
     Indication: Product used for unknown indication
     Dosage: UNK
     Route: 048

REACTIONS (2)
  - Pulmonary haemorrhage [Recovered/Resolved]
  - Neonatal respiratory distress syndrome [Unknown]

NARRATIVE: CASE EVENT DATE: 20210202
